FAERS Safety Report 6828442-5 (Version None)
Quarter: 2010Q3

REPORT INFORMATION
  Report Type: 
  Country: None (occurrence: None)
  Receive Date: 20100709
  Receipt Date: 20070209
  Transmission Date: 20110219
  Serious: No
  Sender: FDA-Public Use
  Company Number: US-PFIZER INC-2007011815

PATIENT
  Sex: Female
  Weight: 74.84 kg

DRUGS (3)
  1. CHANTIX [Suspect]
     Indication: SMOKING CESSATION THERAPY
     Dates: start: 20070207
  2. MELOXICAM [Concomitant]
     Indication: PLANTAR FASCIITIS
  3. SYNTHROID [Concomitant]

REACTIONS (2)
  - MUSCLE TIGHTNESS [None]
  - PAIN [None]
